FAERS Safety Report 8237562-2 (Version None)
Quarter: 2012Q1

REPORT INFORMATION
  Report Type: 
  Country: None (occurrence: None)
  Receive Date: 20120327
  Receipt Date: 20120319
  Transmission Date: 20120608
  Serious: Yes (Other)
  Sender: FDA-Public Use
  Company Number: CA-BAYER-2012-026776

PATIENT
  Sex: Female

DRUGS (5)
  1. BACLOFEN [Concomitant]
  2. COPAXONE [Concomitant]
     Dosage: UNK UNK, QD
  3. ALLERTEC [Concomitant]
  4. CLIMARA [Suspect]
     Dosage: UNK
     Dates: start: 20120101
  5. CLIMARA [Suspect]

REACTIONS (1)
  - MULTIPLE SCLEROSIS RELAPSE [None]
